FAERS Safety Report 15524791 (Version 2)
Quarter: 2019Q1

REPORT INFORMATION
  Report Type: Report from Study
  Country: US (occurrence: US)
  Receive Date: 20181019
  Receipt Date: 20190126
  Transmission Date: 20190417
  Serious: Yes (Other)
  Sender: FDA-Public Use
  Company Number: US-SHIRE-US201839728

PATIENT
  Age: 14 Year
  Sex: Male

DRUGS (1)
  1. ELAPRASE [Suspect]
     Active Substance: IDURSULFASE
     Indication: MUCOPOLYSACCHARIDOSIS II
     Dosage: 42 MG, 1X/WEEK
     Route: 042
     Dates: start: 20110308

REACTIONS (3)
  - Bronchitis [Unknown]
  - Inappropriate schedule of product administration [Unknown]
  - Ear infection [Unknown]

NARRATIVE: CASE EVENT DATE: 201810
